FAERS Safety Report 6089309-6 (Version None)
Quarter: 2009Q1

REPORT INFORMATION
  Report Type: 
  Country: None (occurrence: None)
  Receive Date: 20090224
  Receipt Date: 20090217
  Transmission Date: 20090719
  Serious: Yes (Other)
  Sender: FDA-Public Use
  Company Number: US-ELI_LILLY_AND_COMPANY-US200902004065

PATIENT
  Age: 65 Year
  Sex: Male

DRUGS (3)
  1. BYETTA [Suspect]
     Route: 058
  2. BYETTA [Suspect]
     Route: 058
  3. METFORMIN [Concomitant]

REACTIONS (1)
  - PANCREATITIS [None]
